FAERS Safety Report 6211119-7 (Version None)
Quarter: 2009Q2

REPORT INFORMATION
  Report Type: 
  Country: None (occurrence: None)
  Receive Date: 20090528
  Receipt Date: 20090518
  Transmission Date: 20091009
  Serious: Yes (Other)
  Sender: FDA-Public Use
  Company Number: 2009AP002001

PATIENT
  Age: 74 Year
  Sex: Female

DRUGS (1)
  1. ALENDRONATE SODIUM [Suspect]
     Dosage: PO
     Route: 048

REACTIONS (3)
  - BONE DISORDER [None]
  - OSTEOSCLEROSIS [None]
  - PERIODONTAL DISEASE [None]
